FAERS Safety Report 9623169 (Version 3)
Quarter: 2013Q4

REPORT INFORMATION
  Report Type: Spontaneous
  Country: US (occurrence: None)
  Receive Date: 20131010
  Receipt Date: 20131106
  Transmission Date: 20140711
  Serious: Yes (Hospitalization)
  Sender: FDA-Public Use
  Company Number: 2013SGN00572

PATIENT
  Age: 30 Year
  Sex: Female

DRUGS (5)
  1. BRENTUXIMAB VEDOTIN [Suspect]
     Indication: HODGKIN^S DISEASE
     Dosage: UNK, QCYCLE
     Dates: start: 20130626, end: 20130808
  2. IFOSFAMIDE (IFOSFAMIDE) [Suspect]
     Indication: HODGKIN^S DISEASE
     Dosage: UNK, QCYCLE
     Dates: start: 20130821, end: 20130913
  3. MESNA (MESNA) [Suspect]
     Indication: HODGKIN^S DISEASE
     Dosage: UNK UNK, QCYCLE
     Dates: start: 20130821, end: 20130913
  4. CARBOPLATIN (CARBOPLATIN) [Suspect]
     Indication: HODGKIN^S DISEASE
     Dosage: UNK UNK, QCYCLE
     Dates: start: 20130821, end: 20130913
  5. ETOPOSIDE (ETOPOSIDE PHOSPHATE) [Suspect]
     Indication: HODGKIN^S DISEASE
     Dosage: UNK UNK, QCYCLE
     Dates: start: 20130821, end: 20130913

REACTIONS (3)
  - Febrile neutropenia [None]
  - Platelet count decreased [None]
  - Haemoglobin decreased [None]
